FAERS Safety Report 6694855-8 (Version None)
Quarter: 2010Q2

REPORT INFORMATION
  Report Type: 
  Country: None (occurrence: None)
  Receive Date: 20100423
  Receipt Date: 20100415
  Transmission Date: 20101027
  Serious: Yes (Other)
  Sender: FDA-Public Use
  Company Number: CA-JNJFOC-20100405361

PATIENT
  Sex: Male
  Weight: 84 kg

DRUGS (3)
  1. REMICADE [Suspect]
     Indication: CROHN'S DISEASE
     Route: 042
     Dates: start: 20080101
  2. REMICADE [Suspect]
     Route: 042
     Dates: start: 20080101
  3. ANTICOAGULANTS [Concomitant]

REACTIONS (1)
  - CONTUSION [None]
